FAERS Safety Report 20290494 (Version 1)
Quarter: 2022Q1

REPORT INFORMATION
  Report Type: Spontaneous
  Country: US (occurrence: None)
  Receive Date: 20220103
  Receipt Date: 20220103
  Transmission Date: 20220424
  Serious: Yes (Life-Threatening, Hospitalization)
  Sender: FDA-Public Use
  Company Number: None

PATIENT
  Age: 78 Year
  Sex: Male
  Weight: 76 kg

DRUGS (1)
  1. CEFTRIAXONE SODIUM [Suspect]
     Active Substance: CEFTRIAXONE SODIUM
     Indication: Pneumonia
     Dosage: FREQUENCY : ONCE?
     Route: 042
     Dates: start: 20211021, end: 20211021

REACTIONS (4)
  - Anaphylactic reaction [None]
  - Angioedema [None]
  - Nausea [None]
  - Vomiting [None]
